FAERS Safety Report 4639684-1 (Version None)
Quarter: 2005Q2

REPORT INFORMATION
  Report Type: 
  Country: None (occurrence: None)
  Receive Date: 20050415
  Receipt Date: 20050404
  Transmission Date: 20051028
  Serious: No
  Sender: FDA-Public Use
  Company Number: 05P-028-0296266-00

PATIENT
  Sex: Female
  Weight: 2.8123 kg

DRUGS (1)
  1. ULTIVA [Suspect]

REACTIONS (8)
  - CAESAREAN SECTION [None]
  - DRUG EXPOSURE DURING PREGNANCY [None]
  - HYPOTONIA NEONATAL [None]
  - NEONATAL DISORDER [None]
  - OXYGEN SATURATION DECREASED [None]
  - PALLOR [None]
  - PREMATURE BABY [None]
  - RESPIRATORY RATE INCREASED [None]
